FAERS Safety Report 13161280 (Version 4)
Quarter: 2017Q1

REPORT INFORMATION
  Report Type: Report from Study
  Country: US (occurrence: US)
  Receive Date: 20170130
  Receipt Date: 20170228
  Transmission Date: 20170428
  Serious: Yes (Other)
  Sender: FDA-Public Use
  Company Number: PHEH2017US002810

PATIENT
  Age: 31 Year
  Sex: Female
  Weight: 59 kg

DRUGS (6)
  1. PROZAC [Concomitant]
     Active Substance: FLUOXETINE HYDROCHLORIDE
     Dosage: 30 MG, QD
     Route: 065
  2. PRENATAL [Concomitant]
     Active Substance: VITAMINS
     Indication: PRODUCT USED FOR UNKNOWN INDICATION
     Dosage: UNK, QD
     Route: 048
     Dates: start: 20170120, end: 20170217
  3. PRENATAL [Concomitant]
     Active Substance: VITAMINS
     Dosage: 1 DF, QD
     Route: 048
     Dates: start: 20170224
  4. PROZAC [Concomitant]
     Active Substance: FLUOXETINE HYDROCHLORIDE
     Indication: DEPRESSION
     Dosage: 40 MG, QD
     Route: 048
     Dates: start: 201009, end: 201702
  5. GILENYA [Suspect]
     Active Substance: FINGOLIMOD HYDROCHLORIDE
     Indication: RELAPSING-REMITTING MULTIPLE SCLEROSIS
     Dosage: 0.5 MG, QOD
     Route: 048
     Dates: start: 201303, end: 20170120
  6. CETRIZINE [Concomitant]
     Active Substance: CETIRIZINE HYDROCHLORIDE
     Indication: HYPERSENSITIVITY
     Dosage: 10 MG, QD
     Route: 065
     Dates: start: 20161109, end: 20170122

REACTIONS (4)
  - Anxiety [Unknown]
  - Maternal exposure during pregnancy [Unknown]
  - Prescribed underdose [Unknown]
  - Multiple sclerosis relapse [Unknown]

NARRATIVE: CASE EVENT DATE: 201303
